FAERS Safety Report 7760358-2 (Version None)
Quarter: 2011Q3

REPORT INFORMATION
  Report Type: 
  Country: None (occurrence: None)
  Receive Date: 20110919
  Receipt Date: 20110906
  Transmission Date: 20111222
  Serious: Yes (Hospitalization)
  Sender: FDA-Public Use
  Company Number: PHHO2011US15209

PATIENT

DRUGS (12)
  1. HUMULIN 70/30 [Concomitant]
     Dosage: 28 U, BID
  2. MAGNESIUM OXIDE [Concomitant]
     Dosage: 400 MG, BID
     Route: 048
  3. MYFORTIC [Suspect]
     Dosage: 180 MG, BID
  4. LOPRESSOR [Concomitant]
     Dosage: 0.5 MG, BID
  5. NORVASC [Concomitant]
     Dosage: 5 MG, DAILY
  6. ZOCOR [Concomitant]
     Dosage: 40 MG, DAILY
  7. HUMULIN 70/30 [Concomitant]
     Dosage: 20 U, BID
  8. SENSIPAR [Concomitant]
     Dosage: 60 MG, DAILY
  9. PROGRAF [Concomitant]
     Dosage: 3 DF, BID
  10. VITAMIN D [Concomitant]
     Dosage: 50000 IU, QMO
  11. PREDNISONE [Concomitant]
     Dosage: 5 MG, DAILY
  12. ENALAPRIL MALEATE [Concomitant]
     Dosage: 2.5 MG, DAILY

REACTIONS (17)
  - PULMONARY OEDEMA [None]
  - HYPERKALAEMIA [None]
  - ANAEMIA [None]
  - CHEST PAIN [None]
  - ABDOMINAL PAIN [None]
  - DECREASED APPETITE [None]
  - SKIN TURGOR DECREASED [None]
  - CARDIAC FAILURE CONGESTIVE [None]
  - COUGH [None]
  - DIARRHOEA [None]
  - MUCOSAL DRYNESS [None]
  - HAEMOGLOBIN DECREASED [None]
  - VOMITING [None]
  - HYPOPHAGIA [None]
  - HYPOMAGNESAEMIA [None]
  - GASTROENTERITIS [None]
  - HAEMATOCRIT DECREASED [None]
